FAERS Safety Report 12666478 (Version 2)
Quarter: 2016Q4

REPORT INFORMATION
  Report Type: Spontaneous
  Country: NL (occurrence: NL)
  Receive Date: 20160819
  Receipt Date: 20161006
  Transmission Date: 20170207
  Serious: Yes (Other)
  Sender: FDA-Public Use
  Company Number: NL-ROCHE-1816139

PATIENT
  Age: 50 Year
  Sex: Male

DRUGS (1)
  1. PEGASYS [Suspect]
     Active Substance: PEGINTERFERON ALFA-2A
     Indication: HEPATITIS
     Dosage: 180 INJVLST 360MCG/ML WWSP 0,5ML
     Route: 058
     Dates: start: 20151103, end: 20160707

REACTIONS (1)
  - Skin depigmentation [Recovering/Resolving]

NARRATIVE: CASE EVENT DATE: 20160506
